FAERS Safety Report 10171540 (Version 1)
Quarter: 2014Q2

REPORT INFORMATION
  Report Type: Spontaneous
  Country: DE (occurrence: NL)
  Receive Date: 20140514
  Receipt Date: 20140514
  Transmission Date: 20141212
  Serious: No
  Sender: FDA-Public Use
  Company Number: US-MERZ PHARMACEUTICALS, LLC DRUG SAFETY-14MRZ-00190

PATIENT
  Sex: Female

DRUGS (1)
  1. AETHOXYSKLEROL [Suspect]
     Indication: VARICOSE VEIN
     Dosage: UNKNOWN
     Route: 042

REACTIONS (9)
  - Anaphylactic shock [Recovered/Resolved]
  - Blood pressure decreased [Recovered/Resolved]
  - Wound [Unknown]
  - Blister [Unknown]
  - Confusional state [Recovered/Resolved]
  - Heart rate increased [Recovered/Resolved]
  - Depressed level of consciousness [Recovered/Resolved]
  - Application site vesicles [Unknown]
  - Autoimmune disorder [None]
